FAERS Safety Report 18210117 (Version 1)
Quarter: 2020Q3

REPORT INFORMATION
  Report Type: Report from Study
  Country: GB (occurrence: GB)
  Receive Date: 20200829
  Receipt Date: 20200829
  Transmission Date: 20201103
  Serious: Yes (Other)
  Sender: FDA-Public Use
  Company Number: GB-AUROBINDO-AUR-APL-2020-045262

PATIENT

DRUGS (1)
  1. AMOXICILLIN. [Suspect]
     Active Substance: AMOXICILLIN
     Indication: CLOSTRIDIUM DIFFICILE INFECTION
     Dosage: UNK
     Route: 065

REACTIONS (2)
  - Tubulointerstitial nephritis [Unknown]
  - Drug hypersensitivity [Unknown]
